FAERS Safety Report 6572885-4 (Version None)
Quarter: 2010Q1

REPORT INFORMATION
  Report Type: 
  Country: None (occurrence: None)
  Receive Date: 20100207
  Receipt Date: 20100201
  Transmission Date: 20100710
  Serious: Yes (Other)
  Sender: FDA-Public Use
  Company Number: US-ELI_LILLY_AND_COMPANY-US201002000568

PATIENT
  Sex: Male

DRUGS (4)
  1. HUMALOG [Suspect]
     Indication: DIABETES MELLITUS
     Dosage: UNK, AS NEEDED
  2. LANTUS [Concomitant]
     Indication: DIABETES MELLITUS
     Dosage: 160 U, DAILY (1/D)
     Dates: start: 20060101
  3. NOVOLOG [Concomitant]
     Indication: DIABETES MELLITUS
     Dosage: 45 U, EACH MORNING
  4. BYETTA [Concomitant]
     Dates: start: 20090101

REACTIONS (2)
  - COLON CANCER [None]
  - HYPOAESTHESIA [None]
